FAERS Safety Report 8819937 (Version 2)
Quarter: 2012Q4

REPORT INFORMATION
  Report Type: 
  Country: US (occurrence: US)
  Receive Date: 20121001
  Receipt Date: 20121023
  Transmission Date: 20130627
  Serious: Yes (Life-Threatening, Other)
  Sender: FDA-Public Use
  Company Number: US-ASTRAZENECA-2012SE74925

PATIENT
  Age: 77 Year
  Sex: Male
  Weight: 91 kg

DRUGS (8)
  1. LISINOPRIL [Suspect]
     Indication: CORONARY ARTERY DISEASE
     Route: 048
  2. METOPROLOL [Suspect]
     Indication: ACUTE CORONARY SYNDROME
     Route: 065
     Dates: end: 20120911
  3. METOPROLOL [Suspect]
     Indication: CORONARY ARTERY DISEASE
     Route: 065
     Dates: end: 20120911
  4. METOPROLOL [Suspect]
     Indication: ACUTE CORONARY SYNDROME
     Dosage: LOWER DOSES
     Route: 065
  5. METOPROLOL [Suspect]
     Indication: CORONARY ARTERY DISEASE
     Dosage: LOWER DOSES
     Route: 065
  6. BRILINTA [Suspect]
     Indication: ACUTE CORONARY SYNDROME
     Route: 048
     Dates: start: 20120911
  7. ASPIRIN [Concomitant]
     Indication: ACUTE CORONARY SYNDROME
     Route: 048
  8. ASPIRIN [Concomitant]
     Indication: CORONARY ARTERY DISEASE
     Route: 048

REACTIONS (4)
  - Bradycardia [Recovered/Resolved]
  - Myocardial infarction [Unknown]
  - Atrial hypertrophy [Unknown]
  - Coronary artery stenosis [Unknown]
